FAERS Safety Report 9087367 (Version 1)
Quarter: 2013Q1

REPORT INFORMATION
  Report Type: Report from Study
  Country: US (occurrence: US)
  Receive Date: 20130130
  Receipt Date: 20130130
  Transmission Date: 20140127
  Serious: No
  Sender: FDA-Public Use
  Company Number: US-ABBOTT-12P-163-0978601-00

PATIENT
  Age: 85 Year
  Sex: Female

DRUGS (19)
  1. HUMIRA [Suspect]
     Indication: RHEUMATOID ARTHRITIS
     Dates: start: 20120615
  2. MULTAQ [Suspect]
     Indication: ATRIAL FIBRILLATION
  3. CITALOPRAM [Concomitant]
     Indication: DEPRESSION
  4. PHENYTOIN [Concomitant]
     Indication: CONVULSION
     Dosage: 1 IN THE MORNING, 2 IN THE AFTERNOON
  5. SIMVASTATIN [Concomitant]
     Indication: BLOOD CHOLESTEROL
  6. WARFARIN [Concomitant]
     Indication: ANTICOAGULANT THERAPY
  7. ONDANSETRON [Concomitant]
     Indication: NAUSEA
     Dosage: AS REQUIRED
  8. RANITIDINE [Concomitant]
     Indication: GASTROOESOPHAGEAL REFLUX DISEASE
  9. TRICOR [Concomitant]
     Indication: BLOOD CHOLESTEROL
  10. I-CAPS [Concomitant]
     Indication: MACULAR DEGENERATION
  11. ALPRAZOLAM [Concomitant]
     Indication: ANXIETY
  12. FOLIC ACID [Concomitant]
     Indication: PRODUCT USED FOR UNKNOWN INDICATION
  13. MIRTAZAPINE [Concomitant]
     Indication: DEPRESSION
  14. THYROXINE [Concomitant]
     Indication: THYROID DISORDER
  15. NEXIUM [Concomitant]
     Indication: GASTROOESOPHAGEAL REFLUX DISEASE
  16. PROBIOTIC [Concomitant]
     Indication: PRODUCT USED FOR UNKNOWN INDICATION
  17. METHOTREXATE [Concomitant]
     Indication: RHEUMATOID ARTHRITIS
     Dosage: 4 TABS WEEKLY
  18. JANUVIA [Concomitant]
     Indication: DIABETES MELLITUS
  19. GLIPIZIDE [Concomitant]
     Indication: DIABETES MELLITUS
     Dosage: AT BEDTIME

REACTIONS (1)
  - Pain [Unknown]
